FAERS Safety Report 23092830 (Version 1)
Quarter: 2023Q4

REPORT INFORMATION
  Report Type: Spontaneous
  Country: US (occurrence: US)
  Receive Date: 20231021
  Receipt Date: 20231021
  Transmission Date: 20240109
  Serious: Yes (Life-Threatening, Hospitalization, Other)
  Sender: FDA-Public Use
  Company Number: US-drreddys-SPO/USA/23/0180215

PATIENT
  Age: 71 Year
  Sex: Male

DRUGS (4)
  1. DILTIAZEM [Interacting]
     Active Substance: DILTIAZEM
     Indication: Atrial fibrillation
     Route: 042
  2. DILTIAZEM [Interacting]
     Active Substance: DILTIAZEM
     Indication: Atrial fibrillation
     Dosage: MAINTENANCE DOSE
     Route: 048
  3. METHADONE [Interacting]
     Active Substance: METHADONE HYDROCHLORIDE
     Indication: Drug use disorder
  4. OXYGEN [Concomitant]
     Active Substance: OXYGEN
     Indication: Chronic obstructive pulmonary disease

REACTIONS (5)
  - Ileus paralytic [Recovered/Resolved]
  - Potentiating drug interaction [Recovered/Resolved]
  - Respiratory distress [Unknown]
  - Haemodynamic instability [Unknown]
  - Dyspnoea [Unknown]
